FAERS Safety Report 15770841 (Version 2)
Quarter: 2019Q1

REPORT INFORMATION
  Report Type: Report from Study
  Country: CA (occurrence: CA)
  Receive Date: 20181228
  Receipt Date: 20190313
  Transmission Date: 20190417
  Serious: No
  Sender: FDA-Public Use
  Company Number: CA-JNJFOC-20181212273

PATIENT
  Age: 33 Year
  Sex: Female
  Weight: 80 kg

DRUGS (1)
  1. REMICADE [Suspect]
     Active Substance: INFLIXIMAB
     Indication: CROHN^S DISEASE
     Dosage: STRENGTH = 100 MG
     Route: 042

REACTIONS (1)
  - Cyst [Recovering/Resolving]

NARRATIVE: CASE EVENT DATE: 20181127
